FAERS Safety Report 17365494 (Version 1)
Quarter: 2020Q1

REPORT INFORMATION
  Report Type: Spontaneous
  Country: US (occurrence: US)
  Receive Date: 20200204
  Receipt Date: 20200204
  Transmission Date: 20200409
  Serious: Yes (Other)
  Sender: FDA-Public Use
  Company Number: US-ASTRAZENECA-2020SE14324

PATIENT
  Age: 73 Year
  Sex: Female

DRUGS (21)
  1. GILOTRIF [Suspect]
     Active Substance: AFATINIB
     Indication: NON-SMALL CELL LUNG CANCER
     Dosage: 20 MG (1-2)
     Route: 048
     Dates: start: 20171117, end: 20190618
  2. ZYRTEC-D [Concomitant]
     Active Substance: CETIRIZINE HYDROCHLORIDE\PSEUDOEPHEDRINE HYDROCHLORIDE
     Indication: PRODUCT USED FOR UNKNOWN INDICATION
  3. CRANBERRY. [Concomitant]
     Active Substance: CRANBERRY
     Indication: PRODUCT USED FOR UNKNOWN INDICATION
  4. MULTIVITAMIN [Concomitant]
     Active Substance: VITAMINS
     Indication: PRODUCT USED FOR UNKNOWN INDICATION
  5. NIACINAMIDE [Concomitant]
     Active Substance: NIACINAMIDE
     Indication: PRODUCT USED FOR UNKNOWN INDICATION
  6. METRONIDAZOLE. [Concomitant]
     Active Substance: METRONIDAZOLE
     Indication: PRODUCT USED FOR UNKNOWN INDICATION
  7. VITAMIN D2 [Concomitant]
     Active Substance: ERGOCALCIFEROL
     Indication: PRODUCT USED FOR UNKNOWN INDICATION
  8. METAMUCIL [Concomitant]
     Active Substance: PLANTAGO SEED
     Indication: PRODUCT USED FOR UNKNOWN INDICATION
  9. CURCUMIN [Concomitant]
     Active Substance: CURCUMIN
     Indication: PRODUCT USED FOR UNKNOWN INDICATION
  10. TAGRISSO [Suspect]
     Active Substance: OSIMERTINIB
     Route: 048
     Dates: start: 20190618
  11. FISH OIL PLUS VITAMIN D [Concomitant]
     Indication: PRODUCT USED FOR UNKNOWN INDICATION
  12. TUMS (CALCIUM CARBONATE, MAGNESIUM CARBONATE, MAGNESIUM TRISILICATE) [Concomitant]
     Indication: PRODUCT USED FOR UNKNOWN INDICATION
  13. AFATINIB [Concomitant]
     Active Substance: AFATINIB
  14. OMEPRAZOLE. [Concomitant]
     Active Substance: OMEPRAZOLE
  15. SIMVASTATIN. [Concomitant]
     Active Substance: SIMVASTATIN
     Indication: PRODUCT USED FOR UNKNOWN INDICATION
  16. CLINDAMYCIN/BENZOYL PEROXIDE [Concomitant]
     Active Substance: BENZOYL PEROXIDE\CLINDAMYCIN PHOSPHATE
     Indication: PRODUCT USED FOR UNKNOWN INDICATION
  17. METFORMIN [Concomitant]
     Active Substance: METFORMIN HYDROCHLORIDE
     Indication: PRODUCT USED FOR UNKNOWN INDICATION
  18. COLACE [Concomitant]
     Active Substance: DOCUSATE SODIUM
     Indication: PRODUCT USED FOR UNKNOWN INDICATION
  19. CLINDAMYCIN. [Concomitant]
     Active Substance: CLINDAMYCIN
     Indication: PRODUCT USED FOR UNKNOWN INDICATION
  20. FLONASE [Concomitant]
     Active Substance: FLUTICASONE PROPIONATE
     Indication: PRODUCT USED FOR UNKNOWN INDICATION
  21. FOLIC ACID. [Concomitant]
     Active Substance: FOLIC ACID
     Indication: PRODUCT USED FOR UNKNOWN INDICATION

REACTIONS (18)
  - Speech disorder [Unknown]
  - Pancreatic carcinoma [Unknown]
  - Back pain [Unknown]
  - Dysphonia [Unknown]
  - Malignant neoplasm progression [Unknown]
  - Weight increased [Unknown]
  - Nasopharyngitis [Unknown]
  - Nausea [Not Recovered/Not Resolved]
  - Asthenia [Unknown]
  - Dysphagia [Unknown]
  - Vomiting [Not Recovered/Not Resolved]
  - Increased appetite [Unknown]
  - Skin disorder [Not Recovered/Not Resolved]
  - Fatigue [Unknown]
  - Diarrhoea [Not Recovered/Not Resolved]
  - Therapeutic product ineffective [Unknown]
  - Lower respiratory tract congestion [Unknown]
  - Nail disorder [Not Recovered/Not Resolved]

NARRATIVE: CASE EVENT DATE: 20171231
